FAERS Safety Report 24997668 (Version 3)
Quarter: 2025Q1

REPORT INFORMATION
  Report Type: Spontaneous
  Country: US (occurrence: US)
  Receive Date: 20250222
  Receipt Date: 20250307
  Transmission Date: 20250409
  Serious: No
  Sender: UNITED THERAPEUTICS
  Company Number: US-UNITED THERAPEUTICS-UNT-2025-005654

PATIENT
  Age: 6 Year
  Sex: Female

DRUGS (2)
  1. UNITUXIN [Suspect]
     Active Substance: DINUTUXIMAB
     Indication: Product used for unknown indication
     Route: 041
  2. UNITUXIN [Suspect]
     Active Substance: DINUTUXIMAB
     Route: 041

REACTIONS (1)
  - Mydriasis [Recovering/Resolving]
